FAERS Safety Report 9343895 (Version 1)
Quarter: 2013Q2

REPORT INFORMATION
  Report Type: Spontaneous
  Country: IT (occurrence: IT)
  Receive Date: 20130612
  Receipt Date: 20130612
  Transmission Date: 20140414
  Serious: Yes (Hospitalization)
  Sender: FDA-Public Use
  Company Number: IT-JNJFOC-20130604925

PATIENT
  Sex: Female

DRUGS (1)
  1. LISTERINE [Suspect]
     Indication: PRODUCT USED FOR UNKNOWN INDICATION
     Dosage: A WHOLE BOTTLE
     Route: 048
     Dates: start: 20130607, end: 20130607

REACTIONS (1)
  - Drug abuse [Unknown]
